FAERS Safety Report 4373484-5 (Version None)
Quarter: 2004Q1

REPORT INFORMATION
  Report Type: 
  Country: None (occurrence: None)
  Receive Date: 20040305
  Receipt Date: 20031217
  Transmission Date: 20041129
  Serious: Yes (Other)
  Sender: FDA-Public Use
  Company Number: 2003UW16841

PATIENT
  Age: 68 Year
  Sex: Female
  Weight: 74.3899 kg

DRUGS (8)
  1. CRESTOR [Suspect]
     Indication: HYPERCHOLESTEROLAEMIA
     Dosage: 10 MG QD PO
     Route: 048
     Dates: start: 20031125
  2. TENORETIC [Concomitant]
  3. POTASSIUM [Concomitant]
  4. BUSPAR [Concomitant]
  5. PRILOSEC [Concomitant]
  6. PREMARIN [Concomitant]
  7. FOLIC ACID [Concomitant]
  8. DARVOCET-N 100 [Concomitant]

REACTIONS (4)
  - NASAL CONGESTION [None]
  - PHARYNGOLARYNGEAL PAIN [None]
  - PULMONARY CONGESTION [None]
  - WHEEZING [None]
